FAERS Safety Report 7996979-1 (Version None)
Quarter: 2011Q4

REPORT INFORMATION
  Report Type: 
  Country: None (occurrence: None)
  Receive Date: 20111216
  Receipt Date: 20111130
  Transmission Date: 20120403
  Serious: Yes (Hospitalization)
  Sender: FDA-Public Use
  Company Number: 1000026137

PATIENT
  Age: 87 Year
  Sex: Female

DRUGS (7)
  1. KARY UNI (PIRENOXINE) (PIRENOXINE) [Concomitant]
  2. CIMETIPRAL (CIMETIDINE) (CIMETIDINE) [Concomitant]
  3. NIFEDIPINE [Concomitant]
  4. MEMANTINE HYDROCHLORIDE [Suspect]
     Indication: DEMENTIA ALZHEIMER'S TYPE
     Dosage: 5 MG (5 MG, 1 IN 1 D), ORAL
     Route: 048
     Dates: start: 20111019, end: 20111118
  5. MEMANTINE HYDROCHLORIDE [Suspect]
     Indication: DEMENTIA ALZHEIMER'S TYPE
     Dosage: 20 MG (20 MG, 1 IN 1 D), ORAL
     Route: 048
     Dates: start: 20111119, end: 20111121
  6. CEONOMAL (AROTINOLOL HYDROCHLORIDE) (AROTINOLOL HYDROCHLORIDE) [Concomitant]
  7. LENIMEC (ENALAPRIL MALEATE) (ENALAPRIL MALEATE [Concomitant]

REACTIONS (17)
  - DEPRESSED LEVEL OF CONSCIOUSNESS [None]
  - HYPERSOMNIA [None]
  - ALTERED STATE OF CONSCIOUSNESS [None]
  - RESTLESSNESS [None]
  - LISTLESS [None]
  - BRADYPHRENIA [None]
  - ABULIA [None]
  - SOMNOLENCE [None]
  - CONFUSIONAL STATE [None]
  - DIZZINESS [None]
  - ELEVATED MOOD [None]
  - SEDATION [None]
  - AMIMIA [None]
  - HALLUCINATION, VISUAL [None]
  - LOSS OF CONSCIOUSNESS [None]
  - DECREASED ACTIVITY [None]
  - MUTISM [None]
